FAERS Safety Report 8235857-X (Version None)
Quarter: 2012Q1

REPORT INFORMATION
  Report Type: 
  Country: None (occurrence: None)
  Receive Date: 20120326
  Receipt Date: 20120322
  Transmission Date: 20120608
  Serious: No
  Sender: FDA-Public Use
  Company Number: US-PFIZER INC-2012075168

PATIENT
  Sex: Female
  Weight: 90.703 kg

DRUGS (5)
  1. ATENOLOL [Concomitant]
     Indication: HYPERTENSION
     Dosage: UNK
  2. ALBUTEROL [Concomitant]
     Indication: CHRONIC OBSTRUCTIVE PULMONARY DISEASE
     Dosage: UNK
  3. ZOLOFT [Suspect]
     Dosage: 250 MG, 1X/DAY
     Route: 048
     Dates: start: 20120315
  4. CLARITIN [Concomitant]
     Dosage: UNK
  5. ZOLOFT [Suspect]
     Indication: DEPRESSION
     Dosage: 200 MG, 1X/DAY
     Route: 048
     Dates: start: 19930101, end: 20120301

REACTIONS (5)
  - BLOOD POTASSIUM DECREASED [None]
  - DRUG INEFFECTIVE [None]
  - SOMNOLENCE [None]
  - FEELING JITTERY [None]
  - DIZZINESS [None]
